FAERS Safety Report 11350335 (Version 1)
Quarter: 2015Q3

REPORT INFORMATION
  Report Type: Spontaneous
  Country: US (occurrence: US)
  Receive Date: 20150807
  Receipt Date: 20150807
  Transmission Date: 20151125
  Serious: Yes (Other)
  Sender: FDA-Public Use
  Company Number: US-MALLINCKRODT-T201502020

PATIENT
  Age: 27 Year
  Sex: Male

DRUGS (3)
  1. GABLOFEN [Suspect]
     Active Substance: BACLOFEN
     Dosage: 5 ?GM/HR
     Route: 037
     Dates: start: 201504
  2. GABLOFEN [Suspect]
     Active Substance: BACLOFEN
     Indication: MUSCLE SPASTICITY
     Dosage: 1760 MCG/DAY
     Route: 037
     Dates: start: 20150407, end: 20150408
  3. GABLOFEN [Suspect]
     Active Substance: BACLOFEN
     Dosage: 75 MCG/DAY
     Route: 037
     Dates: start: 20150402, end: 20150407

REACTIONS (2)
  - Overdose [Recovered/Resolved]
  - Incorrect drug administration rate [Recovered/Resolved]

NARRATIVE: CASE EVENT DATE: 20150408
